FAERS Safety Report 21844502 (Version 1)
Quarter: 2023Q1

REPORT INFORMATION
  Report Type: Report from Study
  Country: CA (occurrence: CA)
  Receive Date: 20230110
  Receipt Date: 20230110
  Transmission Date: 20230418
  Serious: Yes (Hospitalization, Other)
  Sender: FDA-Public Use
  Company Number: CA-MYLANLABS-2022M1138313

PATIENT
  Age: 77 Year
  Sex: Male
  Weight: 71.3 kg

DRUGS (1)
  1. OGIVRI [Suspect]
     Active Substance: TRASTUZUMAB-DKST
     Indication: Metastatic gastric cancer
     Dosage: 456.6 MILLIGRAM, Q3W(608.8 MG/ X1 (LOADING DOSE))
     Route: 042
     Dates: start: 20221115

REACTIONS (9)
  - Hypersensitivity [Unknown]
  - Respiratory distress [Recovered/Resolved]
  - Bradycardia [Recovered/Resolved]
  - Tremor [Recovered/Resolved]
  - Dyspnoea [Recovered/Resolved]
  - Wheezing [Recovered/Resolved]
  - Blood pressure decreased [Recovered/Resolved]
  - Oxygen saturation decreased [Recovered/Resolved]
  - Bronchospasm [Recovered/Resolved]

NARRATIVE: CASE EVENT DATE: 20221115
